FAERS Safety Report 8843443 (Version 1)
Quarter: 2012Q4

REPORT INFORMATION
  Report Type: 
  Country: US (occurrence: US)
  Receive Date: 20121016
  Receipt Date: 20121016
  Transmission Date: 20130627
  Serious: No
  Sender: FDA-Public Use
  Company Number: US-BAYER-2012-108346

PATIENT
  Sex: Female

DRUGS (3)
  1. AVELOX [Suspect]
     Dosage: 400 mg, QOD
     Route: 048
  2. ANTIHYPERTENSIVES [Concomitant]
  3. POTASSIUM-SPARING AGENTS [Concomitant]

REACTIONS (2)
  - Confusional state [None]
  - Feeling abnormal [None]
